FAERS Safety Report 4887439-5 (Version None)
Quarter: 2006Q1

REPORT INFORMATION
  Report Type: 
  Country: None (occurrence: None)
  Receive Date: 20060118
  Receipt Date: 20060106
  Transmission Date: 20060701
  Serious: Yes (Hospitalization)
  Sender: FDA-Public Use
  Company Number: 220906

PATIENT
  Age: 69 Year
  Sex: Male
  Weight: 82 kg

DRUGS (19)
  1. MABTHERA (RITUXIMAB) CONC FOR SOLUTION FOR INFUSION [Suspect]
     Indication: LYMPHOMA
     Dosage: 750 MG, INTRAVENOUS
     Route: 042
     Dates: start: 20041108, end: 20041108
  2. MABTHERA (RITUXIMAB) CONC FOR SOLUTION FOR INFUSION [Suspect]
     Indication: LYMPHOMA
     Dosage: 750 MG, INTRAVENOUS
     Route: 042
     Dates: start: 20041122
  3. DOXORUBICIN HCL [Suspect]
     Indication: LYMPHOMA
     Dosage: 150 MG, INTRAVENOUS
     Route: 042
     Dates: start: 20041103, end: 20041103
  4. DOXORUBICIN HCL [Suspect]
     Indication: LYMPHOMA
     Dosage: 150 MG, INTRAVENOUS
     Route: 042
     Dates: start: 20041123, end: 20041127
  5. METHOTREXATE [Suspect]
     Indication: LYMPHOMA
     Dosage: INTRATHECAL
     Route: 037
     Dates: start: 20041104, end: 20041104
  6. ELDISINE [Suspect]
     Indication: LYMPHOMA
     Dosage: INTRAVENOUS
     Route: 042
     Dates: start: 20041103, end: 20041106
  7. ELDISINE [Suspect]
     Indication: LYMPHOMA
     Dosage: INTRAVENOUS
     Route: 042
     Dates: start: 20041123, end: 20041127
  8. ENDOXAN (CYCLOPHOSPHAMIDE) [Suspect]
     Indication: LYMPHOMA
     Dosage: 2400 MG, INTRAVENOUS
     Route: 042
     Dates: start: 20041103, end: 20041103
  9. ENDOXAN (CYCLOPHOSPHAMIDE) [Suspect]
     Indication: LYMPHOMA
     Dosage: 2400 MG, INTRAVENOUS
     Route: 042
     Dates: start: 20041123, end: 20041127
  10. BLEOMYCIN SULFATE [Suspect]
     Indication: LYMPHOMA
     Dosage: INTRAVENOUS
     Route: 042
     Dates: start: 20041104, end: 20041104
  11. BLEOMYCIN SULFATE [Suspect]
     Indication: LYMPHOMA
     Dosage: INTRAVENOUS
     Route: 042
     Dates: start: 20041123, end: 20041127
  12. SOLU-MEDROL [Concomitant]
  13. NEORECORMON (EPOETIN BETA) [Concomitant]
  14. TENORDATE (ATENOLOL, NIFEDIPINE) [Concomitant]
  15. ALLOPURINOL [Concomitant]
  16. OMEPRAZOLE [Concomitant]
  17. ENDOTELON (PROCYANIDOLIC OLIGOMERS) [Concomitant]
  18. NEUPOGEN 30 (FILGRASTIM) [Concomitant]
  19. PRBC (BLOOD CELLS, RED) [Concomitant]

REACTIONS (2)
  - AGRANULOCYTOSIS [None]
  - FEBRILE BONE MARROW APLASIA [None]
